FAERS Safety Report 7028580-0 (Version None)
Quarter: 2010Q4

REPORT INFORMATION
  Report Type: 
  Country: None (occurrence: None)
  Receive Date: 20101005
  Receipt Date: 20101001
  Transmission Date: 20110411
  Serious: Yes (Hospitalization)
  Sender: FDA-Public Use
  Company Number: US-SHIRE-SPV1-2010-01703

PATIENT
  Sex: Female

DRUGS (12)
  1. ADDERALL XR 10 [Suspect]
     Indication: FATIGUE
     Dosage: 20 MG, 1X/DAY:QD
     Route: 048
     Dates: start: 20100304, end: 20100910
  2. BLINDED THERAPY FOR NERATINIB [Suspect]
     Indication: BREAST CANCER
     Dosage: 240 MG, 1X/DAY:QD
     Route: 048
     Dates: start: 20100322
  3. ALPRAZOLAM [Suspect]
     Indication: ANXIETY
     Dosage: .5 MG, AS REQ'D
     Route: 048
     Dates: start: 20091117, end: 20100910
  4. DIFLUNISAL [Suspect]
     Indication: MYALGIA
     Dosage: 500 MG, 1X/DAY:QD
     Route: 048
     Dates: start: 20100521, end: 20100910
  5. LEXAPRO [Suspect]
     Indication: ANTIDEPRESSANT THERAPY
     Dosage: 10 MG, 1X/DAY:QD
     Route: 048
     Dates: start: 20100218, end: 20100910
  6. TAMOXIFEN CITRATE [Concomitant]
  7. COLECALCIFEROL [Concomitant]
  8. VITAMIN B-12 [Concomitant]
  9. VALTREX [Concomitant]
  10. CLARITIN                           /00917501/ [Concomitant]
  11. TYLENOL (CAPLET) [Concomitant]
  12. IBUPROFEN [Concomitant]

REACTIONS (3)
  - MUSCULAR WEAKNESS [None]
  - OFF LABEL USE [None]
  - TREMOR [None]
